FAERS Safety Report 5664529-0 (Version None)
Quarter: 2008Q1

REPORT INFORMATION
  Report Type: 
  Country: None (occurrence: None)
  Receive Date: 20080311
  Receipt Date: 20080311
  Transmission Date: 20080703
  Serious: Yes (Hospitalization)
  Sender: FDA-Public Use
  Company Number: None

PATIENT
  Age: 65 Year
  Sex: Male
  Weight: 83.4619 kg

DRUGS (1)
  1. BACLOFEN [Suspect]
     Indication: AMYOTROPHIC LATERAL SCLEROSIS
     Dosage: 10 MG HALF 3 TIMES A DAY PO
     Route: 048
     Dates: start: 20080301, end: 20080301

REACTIONS (3)
  - BLOOD PRESSURE INCREASED [None]
  - CONFUSIONAL STATE [None]
  - DIZZINESS [None]
